FAERS Safety Report 16418441 (Version 4)
Quarter: 2020Q4

REPORT INFORMATION
  Report Type: Report from Study
  Country: CN (occurrence: CN)
  Receive Date: 20190612
  Receipt Date: 20201117
  Transmission Date: 20210113
  Serious: Yes (Hospitalization)
  Sender: FDA-Public Use
  Company Number: CN-AMGEN-CHNCT2019091293

PATIENT
  Age: 26 Year
  Sex: Female
  Weight: 47 kg

DRUGS (15)
  1. COMPOUND SODIUM CHLORIDE [CALCIUM CHLORIDE;POTASSIUM CHLORIDE;SODIUM C [Concomitant]
     Dosage: 500 MILLILITER
     Route: 042
     Dates: start: 20190604, end: 20190607
  2. DEXAMETHASONE. [Concomitant]
     Active Substance: DEXAMETHASONE
     Dosage: 3-20 MILLIGRAM
     Dates: start: 20190525, end: 20190620
  3. CEFACLOR. [Concomitant]
     Active Substance: CEFACLOR
     Dosage: 375 MILLIGRAM
     Route: 048
     Dates: start: 20190526, end: 20190527
  4. MEROPENEM. [Concomitant]
     Active Substance: MEROPENEM
     Dosage: 1000 MILLIGRAM
     Route: 042
     Dates: start: 20190604, end: 20190617
  5. METHYLPREDNISOLONE. [Concomitant]
     Active Substance: METHYLPREDNISOLONE
     Dosage: 40 MILLIGRAM
     Route: 042
     Dates: start: 20190604, end: 20190604
  6. BLINATUMOMAB [Suspect]
     Active Substance: BLINATUMOMAB
     Dosage: 9 MICROGRAM, QD
     Route: 042
     Dates: start: 20190613
  7. PIPERACILLIN SODIUM;TAZOBACTAM [Concomitant]
     Active Substance: PIPERACILLIN SODIUM\TAZOBACTAM SODIUM
     Dosage: 4.5 GRAM
     Route: 042
     Dates: start: 20190527, end: 20190604
  8. ADEMETIONINE 1,4-BUTANEDISULFONATE [Concomitant]
     Active Substance: ADEMETIONINE BUTANEDISULFONATE
     Dosage: 1000 MILLIGRAM
     Route: 042
     Dates: start: 20190603, end: 20190710
  9. COMPOUND GUAIFENESIN [Concomitant]
     Dosage: 10 MILLILITER
     Route: 048
     Dates: start: 20190526, end: 20190607
  10. OMEPRAZOLE SODIUM [Concomitant]
     Active Substance: OMEPRAZOLE SODIUM
     Dosage: 40 MILLIGRAM
     Route: 042
     Dates: start: 20190524, end: 20190604
  11. COMPOUND PARACETAMOL [Concomitant]
     Dosage: 1 UNK
     Route: 048
     Dates: start: 20190525, end: 20190525
  12. HEPARIN SODIUM. [Concomitant]
     Active Substance: HEPARIN SODIUM
     Dosage: 12500 UNK
     Route: 042
     Dates: start: 20190531, end: 20190712
  13. IBUPROFEN [IBUPROFEN SODIUM] [Concomitant]
     Dosage: 0.2 GRAM
     Route: 048
     Dates: start: 20190603, end: 20190604
  14. BLINATUMOMAB [Suspect]
     Active Substance: BLINATUMOMAB
     Indication: B PRECURSOR TYPE ACUTE LEUKAEMIA
     Dosage: 28 MICROGRAM, QD
     Route: 042
     Dates: start: 20190525
  15. POTASSIUM CHLORIDE. [Concomitant]
     Active Substance: POTASSIUM CHLORIDE
     Dosage: 500 MILLIGRAM AND 20 MILLILITER
     Dates: start: 20190602, end: 20190610

REACTIONS (1)
  - Epilepsy [Recovered/Resolved]

NARRATIVE: CASE EVENT DATE: 20190606
